FAERS Safety Report 5583433-X (Version None)
Quarter: 2007Q4

REPORT INFORMATION
  Report Type: 
  Country: None (occurrence: None)
  Receive Date: 20071130
  Receipt Date: 20061101
  Transmission Date: 20080405
  Serious: Yes (Disabling)
  Sender: FDA-Public Use
  Company Number: WAES 0611USA01062

PATIENT
  Age: 59 Year
  Sex: Female

DRUGS (7)
  1. FOSAMAX [Suspect]
     Indication: OSTEOPOROSIS
     Dosage: 70 MG/WKY/PO
     Route: 048
     Dates: start: 20060913, end: 20061030
  2. ACIPHEX [Concomitant]
  3. CELEBREX [Concomitant]
  4. MAXZIDE [Concomitant]
  5. MINOCIN [Concomitant]
  6. PROZAC [Concomitant]
  7. WELLBUTRIN [Concomitant]

REACTIONS (1)
  - ARTHRALGIA [None]
